FAERS Safety Report 9276232 (Version 1)
Quarter: 2013Q2

REPORT INFORMATION
  Report Type: Spontaneous
  Country: IT (occurrence: IT)
  Receive Date: 20130507
  Receipt Date: 20130507
  Transmission Date: 20140414
  Serious: Yes (Hospitalization)
  Sender: FDA-Public Use
  Company Number: IT-ASTRAZENECA-2013SE30749

PATIENT
  Age: 22857 Day
  Sex: Male

DRUGS (3)
  1. PROVISACOR [Suspect]
     Indication: DYSLIPIDAEMIA
     Route: 048
     Dates: start: 20120402, end: 20130322
  2. LEVOFLOXACIN [Concomitant]
     Route: 048
     Dates: start: 20120928, end: 20121002
  3. SIVASTIN [Concomitant]
     Dates: start: 20060606, end: 20120402

REACTIONS (1)
  - Tendon rupture [Recovered/Resolved with Sequelae]
